FAERS Safety Report 22646836 (Version 1)
Quarter: 2023Q2

REPORT INFORMATION
  Report Type: Spontaneous
  Country: US (occurrence: None)
  Receive Date: 20230626
  Receipt Date: 20230626
  Transmission Date: 20230721
  Serious: Yes (Hospitalization)
  Sender: FDA-Public Use
  Company Number: None

PATIENT
  Sex: Female

DRUGS (1)
  1. CAPECITABINE [Suspect]
     Active Substance: CAPECITABINE
     Indication: Breast cancer female
     Dosage: FREQUENCY : TWICE A DAY;?
     Route: 048
     Dates: start: 202304

REACTIONS (9)
  - Drug effect less than expected [None]
  - Rash [None]
  - Erythema [None]
  - Skin irritation [None]
  - Retching [None]
  - Flatulence [None]
  - Urinary tract infection [None]
  - Central nervous system lesion [None]
  - Brain oedema [None]
